FAERS Safety Report 8927419 (Version 3)
Quarter: 2013Q1

REPORT INFORMATION
  Report Type: Spontaneous
  Country: IT (occurrence: DE)
  Receive Date: 20121127
  Receipt Date: 20130306
  Transmission Date: 20140127
  Serious: Yes (Other)
  Sender: FDA-Public Use
  Company Number: DE-FRI-1000040597

PATIENT
  Age: 35 Year
  Sex: Female
  Weight: 67 kg

DRUGS (1)
  1. FOSFOMYCIN [Suspect]
     Indication: CYSTITIS
     Dosage: 3000 MG
     Route: 048
     Dates: start: 20121003, end: 20121003

REACTIONS (1)
  - Dermatitis allergic [Recovered/Resolved]
